FAERS Safety Report 5368056-X (Version None)
Quarter: 2007Q2

REPORT INFORMATION
  Report Type: 
  Country: None (occurrence: None)
  Receive Date: 20070622
  Receipt Date: 20070612
  Transmission Date: 20071010
  Serious: Yes (Other)
  Sender: FDA-Public Use
  Company Number: US-PFIZER INC-2007049130

PATIENT
  Sex: Female
  Weight: 77.3 kg

DRUGS (3)
  1. XALATAN [Suspect]
     Indication: GLAUCOMA
     Dates: start: 20070223, end: 20070301
  2. PREDNISONE TAB [Concomitant]
  3. DRUG, UNSPECIFIED [Concomitant]
     Indication: POLYMYALGIA RHEUMATICA

REACTIONS (3)
  - BLOOD PRESSURE INCREASED [None]
  - NEUTROPHIL COUNT INCREASED [None]
  - WHITE BLOOD CELL COUNT INCREASED [None]
